FAERS Safety Report 5512426-3 (Version None)
Quarter: 2007Q4

REPORT INFORMATION
  Report Type: 
  Country: None (occurrence: None)
  Receive Date: 20071112
  Receipt Date: 20061103
  Transmission Date: 20080405
  Serious: No
  Sender: FDA-Public Use
  Company Number: A0626187A

PATIENT
  Age: 61 Year
  Sex: Male

DRUGS (7)
  1. AVANDAMET [Suspect]
     Dosage: 1000MG TWICE PER DAY
     Route: 048
     Dates: start: 20061026
  2. GLIPIZIDE [Concomitant]
  3. LOTIL [Concomitant]
  4. FOLIC ACID [Concomitant]
  5. PLAVIX [Concomitant]
  6. PRAVACHOL [Concomitant]
  7. BRIMONIDINE TARTRATE [Concomitant]

REACTIONS (8)
  - ANXIETY [None]
  - CONSTIPATION [None]
  - DECREASED APPETITE [None]
  - DEPRESSION [None]
  - DYSGEUSIA [None]
  - FLATULENCE [None]
  - MYALGIA [None]
  - SLEEP DISORDER [None]
